FAERS Safety Report 6821085-9 (Version None)
Quarter: 2010Q3

REPORT INFORMATION
  Report Type: 
  Country: None (occurrence: None)
  Receive Date: 20100707
  Receipt Date: 20071030
  Transmission Date: 20110219
  Serious: Yes (Other)
  Sender: FDA-Public Use
  Company Number: US-PFIZER INC-2007091563

PATIENT
  Sex: Male
  Weight: 65.8 kg

DRUGS (10)
  1. ZOLOFT [Suspect]
     Indication: DEPRESSION
  2. AMBIEN [Concomitant]
     Indication: SLEEP DISORDER
  3. CRESTOR [Concomitant]
  4. FOSAMAX [Concomitant]
  5. NORVASC [Concomitant]
     Indication: HYPERTENSION
  6. ACETYLSALICYLIC ACID [Concomitant]
  7. NEXIUM [Concomitant]
  8. MIRAPEX [Concomitant]
  9. TAMSULOSIN HCL [Concomitant]
     Indication: PROSTATOMEGALY
  10. PROSCAR [Concomitant]
     Indication: PROSTATOMEGALY

REACTIONS (3)
  - ASTHENIA [None]
  - FATIGUE [None]
  - GLAUCOMA [None]
